FAERS Safety Report 17629014 (Version 1)
Quarter: 2020Q2

REPORT INFORMATION
  Report Type: Spontaneous
  Country: US (occurrence: US)
  Receive Date: 20200406
  Receipt Date: 20200406
  Transmission Date: 20200713
  Serious: No
  Sender: FDA-Public Use
  Company Number: US-ALLERGAN-1914952US

PATIENT
  Age: 78 Year
  Sex: Female
  Weight: 59.86 kg

DRUGS (10)
  1. DELZICOL [Suspect]
     Active Substance: MESALAMINE
     Indication: COLITIS
     Dosage: 3 CAPSULES (400 MG EACH), BID
     Route: 065
     Dates: start: 20130923, end: 20190405
  2. CLOPIDOGREL [Concomitant]
     Active Substance: CLOPIDOGREL BISULFATE
     Dosage: 75 MG, QOD
  3. OCUVITE [Concomitant]
     Active Substance: VITAMINS
     Dosage: 1 DF, QAM
  4. CLINDAMYCIN. [Concomitant]
     Active Substance: CLINDAMYCIN
     Dosage: 300 MG
  5. BISOPROLOL [Concomitant]
     Active Substance: BISOPROLOL
     Dosage: 0.5 DF, QAM
  6. LOSARTAN. [Concomitant]
     Active Substance: LOSARTAN
     Dosage: 0.5 DF, QAM
  7. LIPITOR [Concomitant]
     Active Substance: ATORVASTATIN CALCIUM
     Dosage: 10 MG, QPM
  8. ISOSORBIDE MONONITRATE. [Concomitant]
     Active Substance: ISOSORBIDE MONONITRATE
     Dosage: 30 MG, QD
  9. NITROGLYCERIN. [Concomitant]
     Active Substance: NITROGLYCERIN
     Indication: PAIN
     Dosage: 4 MG, PRN
     Route: 060
  10. VITAMIN D3 [Concomitant]
     Active Substance: CHOLECALCIFEROL
     Dosage: 2000 IU, QAM

REACTIONS (7)
  - Palpitations [Recovering/Resolving]
  - Heart rate increased [Unknown]
  - Hyperventilation [Unknown]
  - Facial neuralgia [Unknown]
  - Concussion [Unknown]
  - Chest pain [Recovering/Resolving]
  - Speech disorder [Unknown]

NARRATIVE: CASE EVENT DATE: 20131013
